FAERS Safety Report 20727176 (Version 2)
Quarter: 2022Q2

REPORT INFORMATION
  Report Type: Spontaneous
  Country: CN (occurrence: CN)
  Receive Date: 20220419
  Receipt Date: 20220422
  Transmission Date: 20220721
  Serious: Yes (Hospitalization)
  Sender: FDA-Public Use
  Company Number: CN-BAYER-2022A054740

PATIENT
  Age: 67 Year
  Sex: Male
  Weight: 61 kg

DRUGS (2)
  1. XARELTO [Interacting]
     Active Substance: RIVAROXABAN
     Indication: Prophylaxis
     Dosage: 20 MG, BID
     Route: 048
     Dates: start: 20211101, end: 20220205
  2. CLOPIDOGREL [Interacting]
     Active Substance: CLOPIDOGREL BISULFATE
     Indication: Product used for unknown indication
     Dosage: 75 MG, QD

REACTIONS (3)
  - Hemianaesthesia [Recovering/Resolving]
  - Conjunctival hyperaemia [Recovering/Resolving]
  - Labelled drug-drug interaction medication error [Unknown]

NARRATIVE: CASE EVENT DATE: 20220204
